FAERS Safety Report 11666317 (Version 2)
Quarter: 2015Q4

REPORT INFORMATION
  Report Type: Spontaneous
  Country: JP (occurrence: JP)
  Receive Date: 20151027
  Receipt Date: 20151029
  Transmission Date: 20160304
  Serious: Yes (Hospitalization, Other)
  Sender: FDA-Public Use
  Company Number: PHJP1999JP011657

PATIENT
  Age: 88 Year
  Sex: Female

DRUGS (1)
  1. VOLTAREN [Suspect]
     Active Substance: DICLOFENAC SODIUM
     Indication: BACK PAIN
     Dosage: UNK UKN, UNK

REACTIONS (4)
  - Intestinal ulcer perforation [Unknown]
  - Wound infection [Unknown]
  - Melaena [Unknown]
  - Hypophagia [Unknown]

NARRATIVE: CASE EVENT DATE: 19990718
